FAERS Safety Report 9714227 (Version 1)
Quarter: 2013Q4

REPORT INFORMATION
  Report Type: Spontaneous
  Country: US (occurrence: US)
  Receive Date: 20131126
  Receipt Date: 20131126
  Transmission Date: 20140711
  Serious: No
  Sender: FDA-Public Use
  Company Number: US-GILEAD-2008-0019474

PATIENT
  Sex: Female
  Weight: 104.33 kg

DRUGS (12)
  1. LETAIRIS [Suspect]
     Route: 048
     Dates: start: 20081002
  2. COUMADIN [Concomitant]
  3. VIAGRA [Concomitant]
  4. LASIX [Concomitant]
  5. METOPROLOL [Concomitant]
  6. DOXEPIN [Concomitant]
  7. DIOVAN HCT [Concomitant]
  8. PAXIL [Concomitant]
  9. TEGRETOL [Concomitant]
  10. KLOR-CON [Concomitant]
  11. DULCOLAX (BISACODYL) [Concomitant]
  12. GLYCOLAX PACKET [Concomitant]

REACTIONS (1)
  - Nasal congestion [None]
